FAERS Safety Report 5657333-0 (Version None)
Quarter: 2008Q1

REPORT INFORMATION
  Report Type: 
  Country: None (occurrence: None)
  Receive Date: 20080310
  Receipt Date: 20080208
  Transmission Date: 20080703
  Serious: Yes (Other)
  Sender: FDA-Public Use
  Company Number: PHHY2008CA00996

PATIENT
  Age: 66 Year

DRUGS (1)
  1. DIOVAN [Suspect]
     Indication: HYPERTENSION
     Dosage: 160 MG, UNK
     Route: 048
     Dates: start: 20071004

REACTIONS (2)
  - BLOOD PRESSURE SYSTOLIC INCREASED [None]
  - URINE ALBUMIN/CREATININE RATIO ABNORMAL [None]
